FAERS Safety Report 8337956-0 (Version None)
Quarter: 2012Q2

REPORT INFORMATION
  Report Type: 
  Country: None (occurrence: None)
  Receive Date: 20120504
  Receipt Date: 20120427
  Transmission Date: 20120825
  Serious: No
  Sender: FDA-Public Use
  Company Number: US-JNJFOC-20120501975

PATIENT
  Sex: Female
  Weight: 106.6 kg

DRUGS (2)
  1. DURAGESIC-100 [Suspect]
     Route: 062
     Dates: start: 20120301
  2. DURAGESIC-100 [Suspect]
     Indication: INTERVERTEBRAL DISC DEGENERATION
     Route: 062
     Dates: start: 20120101, end: 20120301

REACTIONS (6)
  - DRUG INEFFECTIVE [None]
  - PRODUCT ADHESION ISSUE [None]
  - DRUG PRESCRIBING ERROR [None]
  - PRODUCT QUALITY ISSUE [None]
  - WRONG TECHNIQUE IN DRUG USAGE PROCESS [None]
  - APPLICATION SITE PAIN [None]
